FAERS Safety Report 8121007-7 (Version None)
Quarter: 2012Q1

REPORT INFORMATION
  Report Type: 
  Country: None (occurrence: None)
  Receive Date: 20120208
  Receipt Date: 20120131
  Transmission Date: 20120608
  Serious: Yes (Other)
  Sender: FDA-Public Use
  Company Number: US-US-EMD SERONO, INC.-7110522

PATIENT
  Sex: Female

DRUGS (7)
  1. UNSPECIFIED MEDICATION [Concomitant]
     Dates: end: 20111101
  2. AMPYRA [Concomitant]
     Dates: end: 20111101
  3. GABAPENTIN [Concomitant]
     Dates: end: 20111101
  4. REBIF [Suspect]
     Indication: MULTIPLE SCLEROSIS
     Dates: start: 20110120
  5. BUPROPION HCL [Concomitant]
     Indication: DEPRESSION
     Dates: end: 20111101
  6. DIAZEPAM [Concomitant]
     Indication: MUSCLE SPASMS
     Dates: end: 20111101
  7. SIMVASTATIN [Concomitant]
     Indication: BLOOD CHOLESTEROL INCREASED
     Dates: end: 20111101

REACTIONS (5)
  - SUICIDAL BEHAVIOUR [None]
  - EYE MOVEMENT DISORDER [None]
  - URINARY INCONTINENCE [None]
  - CONVULSION [None]
  - MOTOR DYSFUNCTION [None]
